FAERS Safety Report 22609639 (Version 1)
Quarter: 2023Q2

REPORT INFORMATION
  Report Type: Spontaneous
  Country: AR (occurrence: AR)
  Receive Date: 20230616
  Receipt Date: 20230616
  Transmission Date: 20230722
  Serious: Yes (Death)
  Sender: FDA-Public Use
  Company Number: AR-OEPI8P-1091

PATIENT

DRUGS (2)
  1. NERLYNX [Suspect]
     Active Substance: NERATINIB
     Indication: HER2 positive breast cancer
     Dosage: DAILY DOSE: 200 MG. THERAPY INTERVAL: UNK
     Route: 048
     Dates: start: 20220601
  2. LOPERAMIDE [Concomitant]
     Active Substance: LOPERAMIDE
     Indication: Product used for unknown indication
     Dosage: LOPERAMIDE AS NEEDED

REACTIONS (1)
  - HER2 positive breast cancer [Fatal]

NARRATIVE: CASE EVENT DATE: 20230607
